FAERS Safety Report 18334810 (Version 1)
Quarter: 2020Q4

REPORT INFORMATION
  Report Type: Spontaneous
  Country: US (occurrence: US)
  Receive Date: 20201001
  Receipt Date: 20201001
  Transmission Date: 20210113
  Serious: No
  Sender: FDA-Public Use
  Company Number: US-BEH-2020122753

PATIENT
  Sex: Female

DRUGS (1)
  1. HIZENTRA [Suspect]
     Active Substance: HUMAN IMMUNOGLOBULIN G
     Indication: HUMORAL IMMUNE DEFECT
     Dosage: 10 GRAM, QW
     Route: 058
     Dates: start: 20200616

REACTIONS (7)
  - Headache [Unknown]
  - Anxiety [Unknown]
  - Pruritus [Unknown]
  - Pain [Unknown]
  - Peripheral swelling [Unknown]
  - Urine output decreased [Unknown]
  - Decreased appetite [Unknown]
